FAERS Safety Report 5167261-5 (Version None)
Quarter: 2006Q4

REPORT INFORMATION
  Report Type: 
  Country: None (occurrence: None)
  Receive Date: 20061207
  Receipt Date: 20061205
  Transmission Date: 20070319
  Serious: Yes (Hospitalization)
  Sender: FDA-Public Use
  Company Number: AU-BOEHRINGER INGELHEIM PHARMACEUTICALS, INC.-2006-BP-14097AU

PATIENT
  Sex: Male

DRUGS (6)
  1. MOBIC [Suspect]
     Route: 048
     Dates: end: 20060317
  2. CLOPIDOGREL [Suspect]
     Route: 048
  3. ASPIRIN [Suspect]
     Route: 048
  4. SIMVASTATIN [Concomitant]
     Route: 048
  5. METOPROLOL TARTRATE [Concomitant]
     Route: 048
  6. GLYCEROL TRIMITRATE [Concomitant]
     Route: 062

REACTIONS (4)
  - ANAEMIA [None]
  - DYSPNOEA [None]
  - FAECES DISCOLOURED [None]
  - NIGHT SWEATS [None]
